FAERS Safety Report 7590079-0 (Version None)
Quarter: 2011Q3

REPORT INFORMATION
  Report Type: 
  Country: None (occurrence: None)
  Receive Date: 20110705
  Receipt Date: 20110330
  Transmission Date: 20111222
  Serious: Yes (Hospitalization)
  Sender: FDA-Public Use
  Company Number: B0710386A

PATIENT
  Sex: Female
  Weight: 63 kg

DRUGS (13)
  1. ALKERAN [Suspect]
     Indication: STEM CELL TRANSPLANT
     Dosage: 200MG PER DAY
     Route: 042
     Dates: start: 20081027, end: 20081027
  2. PRIMPERAN TAB [Concomitant]
     Dosage: 15MG PER DAY
     Route: 048
     Dates: start: 20081023, end: 20081106
  3. GRANISETRON [Concomitant]
     Dosage: 3MG PER DAY
     Route: 042
     Dates: start: 20081022, end: 20081022
  4. POTASSIUM CHLORIDE [Concomitant]
     Dosage: 1000ML PER DAY
     Route: 042
     Dates: start: 20081021, end: 20081120
  5. GRANISETRON [Concomitant]
     Dosage: 6MG PER DAY
     Route: 042
     Dates: start: 20081023, end: 20081027
  6. VEPESID [Suspect]
     Indication: STEM CELL TRANSPLANT
     Dosage: 320MG PER DAY
     Route: 042
     Dates: start: 20081023, end: 20081026
  7. CYTARABINE [Concomitant]
     Indication: STEM CELL TRANSPLANT
     Dosage: 320MG PER DAY
     Route: 042
     Dates: start: 20081023, end: 20081026
  8. FLUCONAZOLE [Concomitant]
     Dosage: 200MG PER DAY
     Route: 048
     Dates: start: 20081021
  9. CYMERIN [Suspect]
     Indication: STEM CELL TRANSPLANT
     Dosage: 480MG PER DAY
     Route: 042
     Dates: start: 20081022, end: 20081022
  10. BACTRIM [Suspect]
     Dosage: 1IUAX PER DAY
     Route: 048
     Dates: start: 20081021, end: 20081028
  11. RITUXIMAB [Concomitant]
     Indication: STEM CELL TRANSPLANT
     Dosage: 600MG PER DAY
     Route: 042
     Dates: start: 20081021, end: 20081021
  12. VICCLOX [Concomitant]
     Dosage: 400MG PER DAY
     Route: 048
     Dates: start: 20081021
  13. URSO 250 [Concomitant]
     Dosage: 600MG PER DAY
     Route: 048
     Dates: start: 20081021, end: 20081127

REACTIONS (2)
  - RASH [None]
  - FEBRILE NEUTROPENIA [None]
